FAERS Safety Report 7487035-X (Version None)
Quarter: 2011Q2

REPORT INFORMATION
  Report Type: 
  Country: None (occurrence: None)
  Receive Date: 20110518
  Receipt Date: 20110510
  Transmission Date: 20111010
  Serious: Yes (Hospitalization)
  Sender: FDA-Public Use
  Company Number: US-BIOGENIDEC-2010BI020599

PATIENT
  Age: 30 Year
  Sex: Female

DRUGS (4)
  1. HYDROCHLOROTHIAZIDE [Concomitant]
  2. TYSABRI [Suspect]
     Route: 042
     Dates: start: 20100520, end: 20100520
  3. AMITRIPTYLINE HCL [Concomitant]
     Dates: end: 20100501
  4. TYSABRI [Suspect]
     Indication: MULTIPLE SCLEROSIS
     Route: 042
     Dates: start: 20080528, end: 20090422

REACTIONS (2)
  - FOETAL DISTRESS SYNDROME [None]
  - PREGNANCY [None]
